FAERS Safety Report 13798927 (Version 1)
Quarter: 2017Q3

REPORT INFORMATION
  Report Type: Spontaneous
  Country: US (occurrence: US)
  Receive Date: 20170727
  Receipt Date: 20170727
  Transmission Date: 20171127
  Serious: No
  Sender: FDA-Public Use
  Company Number: US-JNJFOC-20170710088

PATIENT
  Sex: Female
  Weight: 58.97 kg

DRUGS (2)
  1. SUDAFED 12 HOUR [Suspect]
     Active Substance: PSEUDOEPHEDRINE HYDROCHLORIDE
     Indication: SINUS CONGESTION
     Dosage: 2 PER DAY FOR 10 DAYS
     Route: 048
     Dates: start: 20170701, end: 20170710
  2. SUDAFED 12 HOUR [Suspect]
     Active Substance: PSEUDOEPHEDRINE HYDROCHLORIDE
     Indication: PARANASAL SINUS DISCOMFORT
     Dosage: 2 PER DAY FOR 10 DAYS
     Route: 048
     Dates: start: 20170701, end: 20170710

REACTIONS (1)
  - Drug ineffective [Unknown]
